FAERS Safety Report 25940565 (Version 1)
Quarter: 2025Q4

REPORT INFORMATION
  Report Type: Report from Study
  Country: US (occurrence: US)
  Receive Date: 20251020
  Receipt Date: 20251020
  Transmission Date: 20260118
  Serious: Yes (Other)
  Sender: MYLAN
  Company Number: US-MYLANLABS-2025M1087512

PATIENT
  Age: 74 Year
  Sex: Female
  Weight: 44.45 kg

DRUGS (8)
  1. YUPELRI [Suspect]
     Active Substance: REVEFENACIN
     Indication: Chronic obstructive pulmonary disease
     Dosage: 175 MICROGRAM PER 3 MILLILITER, QD (ONCE DAILY, VIA NEBULIZER)
     Dates: start: 20250927, end: 20251010
  2. YUPELRI [Suspect]
     Active Substance: REVEFENACIN
     Dosage: 175 MICROGRAM PER 3 MILLILITER, QD (ONCE DAILY, VIA NEBULIZER)
     Route: 055
     Dates: start: 20250927, end: 20251010
  3. YUPELRI [Suspect]
     Active Substance: REVEFENACIN
     Dosage: 175 MICROGRAM PER 3 MILLILITER, QD (ONCE DAILY, VIA NEBULIZER)
     Route: 055
     Dates: start: 20250927, end: 20251010
  4. YUPELRI [Suspect]
     Active Substance: REVEFENACIN
     Dosage: 175 MICROGRAM PER 3 MILLILITER, QD (ONCE DAILY, VIA NEBULIZER)
     Dates: start: 20250927, end: 20251010
  5. ALBUTEROL [Concomitant]
     Active Substance: ALBUTEROL
     Dosage: UNK
  6. ALBUTEROL [Concomitant]
     Active Substance: ALBUTEROL
     Dosage: UNK
     Route: 065
  7. ALBUTEROL [Concomitant]
     Active Substance: ALBUTEROL
     Dosage: UNK
     Route: 065
  8. ALBUTEROL [Concomitant]
     Active Substance: ALBUTEROL
     Dosage: UNK

REACTIONS (1)
  - Bronchospasm [Recovered/Resolved]

NARRATIVE: CASE EVENT DATE: 20250930
